FAERS Safety Report 22077401 (Version 2)
Quarter: 2023Q2

REPORT INFORMATION
  Report Type: Spontaneous
  Country: US (occurrence: None)
  Receive Date: 20230309
  Receipt Date: 20230420
  Transmission Date: 20230721
  Serious: No
  Sender: FDA-Public Use
  Company Number: 2023A039707

PATIENT
  Age: 20953 Day
  Sex: Male
  Weight: 113.4 kg

DRUGS (2)
  1. BYDUREON BCISE [Suspect]
     Active Substance: EXENATIDE
     Indication: Diabetes mellitus
     Dates: start: 2020
  2. BYDUREON [Suspect]
     Active Substance: EXENATIDE
     Indication: Diabetes mellitus
     Dates: start: 2015, end: 2020

REACTIONS (4)
  - Injection site haemorrhage [Unknown]
  - Device delivery system issue [Unknown]
  - Wrong technique in device usage process [Unknown]
  - Device leakage [Unknown]

NARRATIVE: CASE EVENT DATE: 20230215
